FAERS Safety Report 24191517 (Version 1)
Quarter: 2024Q3

REPORT INFORMATION
  Report Type: Spontaneous
  Country: US (occurrence: US)
  Receive Date: 20240808
  Receipt Date: 20240808
  Transmission Date: 20241017
  Serious: Yes (Hospitalization)
  Sender: ELI LILLY AND CO
  Company Number: US-ELI_LILLY_AND_COMPANY-US202408000279

PATIENT
  Age: 45 Year
  Sex: Female
  Weight: 83 kg

DRUGS (1)
  1. VERZENIO [Suspect]
     Active Substance: ABEMACICLIB
     Indication: Hormone receptor positive HER2 negative breast cancer
     Dosage: 150 MG, BID
     Route: 048
     Dates: start: 20240524

REACTIONS (4)
  - Muscle spasms [Unknown]
  - Pyrexia [Unknown]
  - Diarrhoea [Recovered/Resolved with Sequelae]
  - Nausea [Unknown]

NARRATIVE: CASE EVENT DATE: 20240701
